FAERS Safety Report 19481165 (Version 1)
Quarter: 2021Q3

REPORT INFORMATION
  Report Type: Spontaneous
  Country: PT (occurrence: PT)
  Receive Date: 20210701
  Receipt Date: 20210701
  Transmission Date: 20211014
  Serious: Yes (Other)
  Sender: FDA-Public Use
  Company Number: PT-CELLTRION INC.-2021PT007492

PATIENT

DRUGS (9)
  1. ADDERA D3 [Concomitant]
     Active Substance: CHOLECALCIFEROL
     Indication: IMMUNODEFICIENCY
     Dosage: 20.000, 1 COMP PER WEEK (STOP DATE: DEC 2020)
     Route: 048
  2. DEPURA [Concomitant]
     Active Substance: CHOLECALCIFEROL
     Dosage: 50. 000 U, 1 COMP PER WEEK
     Route: 048
     Dates: start: 202104
  3. REMSIMA [Suspect]
     Active Substance: INFLIXIMAB
     Indication: COLITIS ULCERATIVE
     Dosage: 2 AND A HALF AMPOULE (100ML EACH ONE) EVERY 4 WEEKS (1X PER MONTH)
     Route: 042
     Dates: start: 202007, end: 20210505
  4. REMSIMA [Suspect]
     Active Substance: INFLIXIMAB
     Dosage: 2 AND A HALF AMPOULE (100ML EACH ONE) EVERY 4 WEEKS (1X PER MONTH)
     Route: 042
     Dates: start: 20210609
  5. PREDNISONE. [Concomitant]
     Active Substance: PREDNISONE
     Indication: HAEMORRHAGE
     Dosage: 1 COMP DURING THE MORNING (STRENGTH: 5MG)
     Route: 048
     Dates: start: 2012
  6. NORIPURUM [Concomitant]
     Active Substance: IRON POLYMALTOSE
     Indication: SUPPLEMENTATION THERAPY
     Dosage: 1 COMP PER DAY (STRENGTH: 10 MG)
     Route: 048
     Dates: start: 202103
  7. CALCIUM BICARBONATE [Concomitant]
     Active Substance: CALCIUM BICARBONATE
     Indication: ASTHENIA
     Dosage: 2 COMP PER DAY (STRENGTH: 500MG)
     Route: 048
     Dates: start: 2013
  8. DEPURA [Concomitant]
     Active Substance: CHOLECALCIFEROL
     Indication: IMMUNODEFICIENCY
     Dosage: 20. 000, 1 COMP PER WEEK
     Route: 048
     Dates: start: 202012, end: 202104
  9. OMEPRAZOLE. [Concomitant]
     Active Substance: OMEPRAZOLE
     Dosage: 1 COMP TWICE PER DAY (STRENGTH: 40 MG) (STOPPED AFTER 45 DAYS)
     Route: 048
     Dates: start: 202104

REACTIONS (5)
  - Suspected COVID-19 [Unknown]
  - Intentional dose omission [Unknown]
  - Alveolitis [Unknown]
  - Treatment delayed [Unknown]
  - Off label use [Unknown]

NARRATIVE: CASE EVENT DATE: 20210528
